FAERS Safety Report 16021159 (Version 1)
Quarter: 2019Q2

REPORT INFORMATION
  Report Type: Spontaneous
  Country: US (occurrence: US)
  Receive Date: 20190228
  Receipt Date: 20190228
  Transmission Date: 20190711
  Serious: Yes (Other)
  Sender: FDA-Public Use
  Company Number: None

PATIENT
  Age: 71 Year
  Sex: Female
  Weight: 116.19 kg

DRUGS (12)
  1. MELOXICAM. [Concomitant]
     Active Substance: MELOXICAM
  2. FUROSEMIDE. [Concomitant]
     Active Substance: FUROSEMIDE
  3. VICTOZA [Concomitant]
     Active Substance: LIRAGLUTIDE
  4. OMEPRAZOLE. [Concomitant]
     Active Substance: OMEPRAZOLE
  5. SIMVASTATIN. [Concomitant]
     Active Substance: SIMVASTATIN
  6. FAMOTIDINE. [Concomitant]
     Active Substance: FAMOTIDINE
  7. METOPROLOL SUCCINATE ER [Concomitant]
     Active Substance: METOPROLOL SUCCINATE
  8. LISINOPRIL-HCTZ [Concomitant]
     Active Substance: HYDROCHLOROTHIAZIDE\LISINOPRIL
  9. LEVOCERTIRIZINE DIHYDROCHLORIDE [Concomitant]
  10. CAPECITABINE. [Suspect]
     Active Substance: CAPECITABINE
     Indication: COLON CANCER
     Route: 048
     Dates: start: 20180828
  11. METFORMIN HCL [Concomitant]
     Active Substance: METFORMIN HYDROCHLORIDE
  12. ASPIRIN ADULT LOW STRENGTH [Concomitant]
     Active Substance: ASPIRIN

REACTIONS (1)
  - Diarrhoea [None]
